FAERS Safety Report 17774100 (Version 2)
Quarter: 2020Q2

REPORT INFORMATION
  Report Type: Spontaneous
  Country: CN (occurrence: CN)
  Receive Date: 20200513
  Receipt Date: 20200515
  Transmission Date: 20200714
  Serious: Yes (Death)
  Sender: FDA-Public Use
  Company Number: CN-ASTRAZENECA-2020SE61479

PATIENT
  Age: 75 Year
  Sex: Female
  Weight: 55 kg

DRUGS (3)
  1. IRESSA [Suspect]
     Active Substance: GEFITINIB
     Indication: NON-SMALL CELL LUNG CANCER
     Dosage: ONE TABLET EVERY MORNING
     Route: 048
     Dates: start: 201808
  2. ROSUVAR [Concomitant]
     Indication: MYOCARDIAL INFARCTION
     Dosage: ONE TABLET PER NIGHT, SEVEN TABLETS PER BOX
     Route: 048
  3. ASPIRIN. [Concomitant]
     Active Substance: ASPIRIN
     Indication: CARDIAC DISORDER
     Dosage: ONE TABLET PER NIGHT
     Route: 048

REACTIONS (6)
  - Lung cancer metastatic [Fatal]
  - Dyspnoea [Fatal]
  - Cerebral infarction [Fatal]
  - Coma [Fatal]
  - Malignant neoplasm progression [Fatal]
  - Hypophagia [Fatal]

NARRATIVE: CASE EVENT DATE: 20200426
